FAERS Safety Report 7070273-8 (Version None)
Quarter: 2010Q4

REPORT INFORMATION
  Report Type: 
  Country: None (occurrence: None)
  Receive Date: 20101028
  Receipt Date: 20101005
  Transmission Date: 20110411
  Serious: No
  Sender: FDA-Public Use
  Company Number: US-WYE-H17996110

PATIENT
  Sex: Female
  Weight: 79 kg

DRUGS (8)
  1. PRISTIQ [Suspect]
     Route: 048
     Dates: start: 20100920
  2. IBUPROFEN [Suspect]
     Indication: HEADACHE
     Route: 048
  3. IBUPROFEN [Suspect]
     Indication: PAIN
     Route: 048
     Dates: end: 20100101
  4. IBUPROFEN [Suspect]
     Indication: ARTHRITIS
     Dosage: ^MORE THEN ONCE DAILY^
     Route: 048
     Dates: start: 20100101
  5. SERTRALINE HYDROCHLORIDE [Concomitant]
     Route: 048
  6. CARISOPRODOL [Concomitant]
     Dosage: UNKNOWN DOSE
     Route: 048
  7. HYDROCODONE BITARTRATE + ACETAMINOPHEN [Concomitant]
     Route: 048
  8. ALPRAZOLAM [Concomitant]
     Dosage: 0.25 MG ^UP TO FOUR TIMES PER DAY^
     Route: 048

REACTIONS (2)
  - DRUG INEFFECTIVE [None]
  - HEADACHE [None]
